FAERS Safety Report 17278967 (Version 1)
Quarter: 2020Q1

REPORT INFORMATION
  Report Type: Report from Study
  Country: US (occurrence: US)
  Receive Date: 20200116
  Receipt Date: 20200116
  Transmission Date: 20200409
  Serious: No
  Sender: FDA-Public Use
  Company Number: NVSC2020US008159

PATIENT
  Age: 50 Year
  Sex: Male

DRUGS (1)
  1. ENTRESTO [Suspect]
     Active Substance: SACUBITRIL\VALSARTAN
     Indication: PRODUCT USED FOR UNKNOWN INDICATION
     Dosage: 1 DF (SACUBITRIL 24MG/ VALSARTAN 26MG), BID
     Route: 048
     Dates: start: 20191214

REACTIONS (5)
  - Insomnia [Unknown]
  - Cough [Unknown]
  - Energy increased [Unknown]
  - Hypotension [Unknown]
  - Feeling abnormal [Unknown]

NARRATIVE: CASE EVENT DATE: 20191221
